FAERS Safety Report 18434590 (Version 1)
Quarter: 2020Q4

REPORT INFORMATION
  Report Type: Other
  Country: CA (occurrence: CA)
  Receive Date: 20201027
  Receipt Date: 20201027
  Transmission Date: 20210114
  Serious: Yes (Death, Other)
  Sender: FDA-Public Use
  Company Number: CA-MAYNE PHARMA-2020MYN000527

PATIENT

DRUGS (3)
  1. ERYTHROMYCIN. [Suspect]
     Active Substance: ERYTHROMYCIN
     Indication: PHARYNGITIS STREPTOCOCCAL
  2. PENICILLIN                         /00000901/ [Suspect]
     Active Substance: PENICILLIN G
     Indication: PHARYNGITIS STREPTOCOCCAL
  3. REMICADE [Suspect]
     Active Substance: INFLIXIMAB
     Indication: CROHN^S DISEASE
     Dosage: 500 MG, CYCLIC (1 PER 6 WEEKS)
     Route: 042

REACTIONS (2)
  - Pharyngitis streptococcal [Fatal]
  - Dermatitis allergic [Fatal]
